FAERS Safety Report 20574198 (Version 2)
Quarter: 2022Q1

REPORT INFORMATION
  Report Type: Spontaneous
  Country: IN (occurrence: IN)
  Receive Date: 20220309
  Receipt Date: 20220316
  Transmission Date: 20220423
  Serious: Yes (Other)
  Sender: FDA-Public Use
  Company Number: IN-PFIZER INC-2021516307

PATIENT
  Age: 51 Year
  Sex: Male

DRUGS (1)
  1. SUTENT [Suspect]
     Active Substance: SUNITINIB MALATE
     Indication: Metastatic renal cell carcinoma
     Dosage: 50 MG, CYCLIC (ONCE A DAY, 2 WEEKS ON 1 WEEK OFF)
     Route: 048
     Dates: start: 20210507

REACTIONS (10)
  - Hemiparesis [Recovering/Resolving]
  - Haemorrhagic stroke [Recovering/Resolving]
  - Hypertension [Recovering/Resolving]
  - Angular cheilitis [Unknown]
  - Blood pressure increased [Unknown]
  - Platelet count decreased [Unknown]
  - Blood creatinine increased [Unknown]
  - Constipation [Unknown]
  - Blood thyroid stimulating hormone increased [Unknown]
  - Blood bilirubin increased [Unknown]

NARRATIVE: CASE EVENT DATE: 20210617
